FAERS Safety Report 4310489-4 (Version None)
Quarter: 2004Q1

REPORT INFORMATION
  Report Type: 
  Country: None (occurrence: None)
  Receive Date: 20040303
  Receipt Date: 20040224
  Transmission Date: 20041129
  Serious: Yes (Other)
  Sender: FDA-Public Use
  Company Number: PHFR2004GB01184

PATIENT
  Age: 27 Year
  Sex: Male

DRUGS (2)
  1. CLOZARIL [Suspect]
     Indication: SCHIZOPHRENIA
     Dosage: 50MG MANE 175MG NOCTE
     Route: 048
     Dates: start: 20031029
  2. CLOZARIL [Suspect]
     Dosage: 500MG MANE MEDICATION ERROR
     Route: 048

REACTIONS (2)
  - MEDICATION ERROR [None]
  - SOMNOLENCE [None]
